FAERS Safety Report 6832931-7 (Version None)
Quarter: 2010Q3

REPORT INFORMATION
  Report Type: 
  Country: None (occurrence: None)
  Receive Date: 20100712
  Receipt Date: 20070320
  Transmission Date: 20110219
  Serious: No
  Sender: FDA-Public Use
  Company Number: US-PFIZER INC-2007024777

PATIENT
  Sex: Female
  Weight: 61.69 kg

DRUGS (7)
  1. CHANTIX [Suspect]
     Indication: SMOKING CESSATION THERAPY
     Dates: start: 20070103
  2. FISH OIL [Concomitant]
  3. PLAVIX [Concomitant]
  4. FOLIC ACID [Concomitant]
  5. ZOCOR [Concomitant]
  6. LISINOPRIL [Concomitant]
     Indication: HYPERTENSION
  7. HYDROCHLOROTHIAZIDE [Concomitant]

REACTIONS (6)
  - DRY SKIN [None]
  - FLATULENCE [None]
  - HYPERSENSITIVITY [None]
  - INCREASED APPETITE [None]
  - SKIN EXFOLIATION [None]
  - WEIGHT INCREASED [None]
